FAERS Safety Report 4628664-8 (Version None)
Quarter: 2005Q2

REPORT INFORMATION
  Report Type: 
  Country: None (occurrence: None)
  Receive Date: 20050404
  Receipt Date: 20050324
  Transmission Date: 20051028
  Serious: Yes (Death)
  Sender: FDA-Public Use
  Company Number: B0375809A

PATIENT
  Sex: 0

DRUGS (2)
  1. HYCAMTIN [Suspect]
     Dosage: 4.5 MG/M2/CONTINUOUS /INTRAVENOUS
  2. CYTARABINE [Suspect]
     Dosage: 2 G/M2 / CONTINUOUS / INTRAVENOUS
     Route: 042

REACTIONS (1)
  - PULMONARY HAEMORRHAGE [None]
